FAERS Safety Report 12900899 (Version 1)
Quarter: 2016Q4

REPORT INFORMATION
  Report Type: Spontaneous
  Country: US (occurrence: US)
  Receive Date: 20161101
  Receipt Date: 20161101
  Transmission Date: 20170207
  Serious: No
  Sender: FDA-Public Use
  Company Number: US-PFIZER INC-2016505848

PATIENT
  Sex: Female

DRUGS (16)
  1. TALWIN [Suspect]
     Active Substance: PENTAZOCINE LACTATE
     Dosage: UNK
  2. LORTAB [Suspect]
     Active Substance: ACETAMINOPHEN\HYDROCODONE BITARTRATE
     Dosage: UNK
  3. ROBAXIN [Suspect]
     Active Substance: METHOCARBAMOL
     Dosage: UNK
  4. VICODIN [Suspect]
     Active Substance: ACETAMINOPHEN\HYDROCODONE BITARTRATE
     Dosage: UNK
  5. ULTRAM [Suspect]
     Active Substance: TRAMADOL HYDROCHLORIDE
     Dosage: UNK
  6. NASACORT [Suspect]
     Active Substance: TRIAMCINOLONE ACETONIDE
     Dosage: UNK
  7. MORPHINE SULFATE. [Suspect]
     Active Substance: MORPHINE SULFATE
     Dosage: UNK
  8. NEURONTIN [Suspect]
     Active Substance: GABAPENTIN
     Dosage: UNK
  9. LYRICA [Suspect]
     Active Substance: PREGABALIN
     Dosage: UNK
  10. CODEINE [Suspect]
     Active Substance: CODEINE
     Dosage: UNK
  11. MIRAPEX [Suspect]
     Active Substance: PRAMIPEXOLE DIHYDROCHLORIDE
     Dosage: UNK
  12. VALIUM [Suspect]
     Active Substance: DIAZEPAM
     Dosage: UNK
  13. CYMBALTA [Suspect]
     Active Substance: DULOXETINE HYDROCHLORIDE
     Dosage: UNK
  14. TRAZODONE [Suspect]
     Active Substance: TRAZODONE HYDROCHLORIDE
     Dosage: UNK
  15. REQUIP [Suspect]
     Active Substance: ROPINIROLE HYDROCHLORIDE
     Dosage: UNK
  16. RELAFEN [Suspect]
     Active Substance: NABUMETONE
     Dosage: UNK

REACTIONS (1)
  - Drug hypersensitivity [Not Recovered/Not Resolved]
